FAERS Safety Report 19812704 (Version 1)
Quarter: 2021Q3

REPORT INFORMATION
  Report Type: Spontaneous
  Country: GB (occurrence: GB)
  Receive Date: 20210909
  Receipt Date: 20210909
  Transmission Date: 20211014
  Serious: Yes (Other)
  Sender: FDA-Public Use
  Company Number: GB-ALVOGEN-2021-ALVOGEN-117442

PATIENT
  Sex: Female

DRUGS (1)
  1. LISINOPRIL. [Suspect]
     Active Substance: LISINOPRIL
     Indication: HYPERTENSION
     Route: 048
     Dates: start: 20160303, end: 20160330

REACTIONS (3)
  - Abdominal pain upper [Recovered/Resolved with Sequelae]
  - Gastrointestinal pain [Recovered/Resolved]
  - Iron deficiency [Not Recovered/Not Resolved]
